FAERS Safety Report 8306508-0 (Version None)
Quarter: 2012Q2

REPORT INFORMATION
  Report Type: 
  Country: None (occurrence: None)
  Receive Date: 20120424
  Receipt Date: 20120416
  Transmission Date: 20120825
  Serious: No
  Sender: FDA-Public Use
  Company Number: US-BIOGENIDEC-2012BI012898

PATIENT
  Age: 48 Year
  Sex: Male

DRUGS (2)
  1. AVONEX [Suspect]
     Route: 030
     Dates: start: 20120301
  2. AVONEX [Suspect]
     Indication: MULTIPLE SCLEROSIS
     Route: 030
     Dates: start: 20110816, end: 20111101

REACTIONS (3)
  - LABORATORY TEST ABNORMAL [None]
  - ABASIA [None]
  - COORDINATION ABNORMAL [None]
